FAERS Safety Report 8611138-7 (Version None)
Quarter: 2012Q3

REPORT INFORMATION
  Report Type: 
  Country: None (occurrence: None)
  Receive Date: 20120822
  Receipt Date: 20120820
  Transmission Date: 20120928
  Serious: Yes (Other)
  Sender: FDA-Public Use
  Company Number: US-PFIZER INC-2012203769

PATIENT
  Age: 52 Year
  Sex: Male
  Weight: 73.923 kg

DRUGS (3)
  1. SKELAXIN [Suspect]
     Indication: BACK DISORDER
     Dosage: 800 MG, ONCE OR TWO TIMES A DAY
  2. PERCOCET [Concomitant]
     Indication: BACK DISORDER
     Dosage: 10/325 MG, TWO TO THREE TIMES OR SOMETIMES FOUR TIMES A DAY
     Dates: start: 20050101
  3. DIAZEPAM [Concomitant]
     Indication: SLEEP DISORDER
     Dosage: 10 MG, DAILY
     Dates: start: 20050101

REACTIONS (1)
  - ATRIAL FIBRILLATION [None]
